FAERS Safety Report 25978893 (Version 1)
Quarter: 2025Q4

REPORT INFORMATION
  Report Type: Spontaneous
  Country: EU (occurrence: EU)
  Receive Date: 20251030
  Receipt Date: 20251030
  Transmission Date: 20260118
  Serious: Yes (Life-Threatening, Hospitalization, Other)
  Sender: HETERO
  Company Number: None

PATIENT
  Age: 73 Year
  Sex: Female
  Weight: 79 kg

DRUGS (3)
  1. ATORVASTATIN [Suspect]
     Active Substance: ATORVASTATIN
     Indication: Hypercholesterolaemia
     Dosage: 80 MILLIGRAM, QD 1/ DIA
     Route: 048
     Dates: start: 20250423, end: 20250903
  2. LEVOTHYROXINE SODIUM [Concomitant]
     Active Substance: LEVOTHYROXINE SODIUM
     Indication: Hypothyroidism
     Dosage: 1/DIA
     Route: 048
     Dates: start: 20150722
  3. TELMISARTAN [Concomitant]
     Active Substance: TELMISARTAN
     Indication: Hypertension
     Dosage: 1.5 COMPS/DAY
     Route: 048
     Dates: start: 20160307

REACTIONS (4)
  - Necrotising myositis [Recovering/Resolving]
  - Hyperbilirubinaemia [Recovered/Resolved]
  - Rhabdomyolysis [Recovering/Resolving]
  - Mixed liver injury [Recovering/Resolving]

NARRATIVE: CASE EVENT DATE: 20250828
